FAERS Safety Report 13601036 (Version 1)
Quarter: 2017Q2

REPORT INFORMATION
  Report Type: Spontaneous
  Country: US (occurrence: US)
  Receive Date: 20170601
  Receipt Date: 20170601
  Transmission Date: 20170830
  Serious: No
  Sender: FDA-Public Use
  Company Number: US-TEVA-760651USA

PATIENT
  Age: 3 Year

DRUGS (1)
  1. CHILDRENS IBUPROFEN [Suspect]
     Active Substance: IBUPROFEN
     Dosage: 100MG PER 5ML
     Route: 065

REACTIONS (5)
  - Vomiting [Unknown]
  - Pyrexia [Unknown]
  - Product physical consistency issue [Unknown]
  - Diarrhoea [Unknown]
  - Malaise [Unknown]
